FAERS Safety Report 23873035 (Version 1)
Quarter: 2024Q2

REPORT INFORMATION
  Report Type: Spontaneous
  Country: GB (occurrence: GB)
  Receive Date: 20240520
  Receipt Date: 20240520
  Transmission Date: 20240715
  Serious: Yes (Other)
  Sender: FDA-Public Use
  Company Number: GB-TTY-202201_00012649

PATIENT
  Age: 75 Year
  Sex: Female

DRUGS (26)
  1. BISOPROLOL [Suspect]
     Active Substance: BISOPROLOL\BISOPROLOL FUMARATE
     Indication: Product used for unknown indication
     Dosage: UNK
     Route: 065
  2. BISOPROLOL [Suspect]
     Active Substance: BISOPROLOL\BISOPROLOL FUMARATE
     Indication: Product used for unknown indication
     Dosage: BISOPROLOL SALT NOT SPECIFIED
     Route: 065
  3. LANSOPRAZOLE [Suspect]
     Active Substance: LANSOPRAZOLE
     Indication: Product used for unknown indication
     Dosage: UNK UNK,UNK
     Route: 065
  4. LANSOPRAZOLE [Suspect]
     Active Substance: LANSOPRAZOLE
     Indication: Product used for unknown indication
     Dosage: DOSAGE TEXT: UNK
     Route: 065
  5. RIVASTIGMINE [Suspect]
     Active Substance: RIVASTIGMINE
     Indication: Product used for unknown indication
     Dosage: UNK UNK,UNK
     Route: 065
  6. ROPINIROLE [Suspect]
     Active Substance: ROPINIROLE
     Indication: Product used for unknown indication
     Dosage: UNK UNK,UNK
     Route: 065
  7. CITALOPRAM [Suspect]
     Active Substance: CITALOPRAM\CITALOPRAM HYDROBROMIDE
     Indication: Product used for unknown indication
     Dosage: UNK UNK,UNK
     Route: 065
  8. BENSERAZIDE HYDROCHLORIDE\LEVODOPA [Concomitant]
     Active Substance: BENSERAZIDE HYDROCHLORIDE\LEVODOPA
     Dosage: DOSAGE TEXT: UNK
  9. CEREZYME [Suspect]
     Active Substance: IMIGLUCERASE
     Indication: Product used for unknown indication
     Dosage: DOSAGE TEXT: 800 INTERNATIONAL UNIT, BIW
     Route: 041
     Dates: start: 20170315, end: 20210329
  10. CEREZYME [Suspect]
     Active Substance: IMIGLUCERASE
     Indication: Product used for unknown indication
     Dosage: UNK
     Route: 065
     Dates: end: 20170315
  11. CEREZYME [Suspect]
     Active Substance: IMIGLUCERASE
     Indication: Product used for unknown indication
     Dosage: DOSAGE TEXT: 1600 INTERNATIONAL UNIT, 1/WEEK QW
     Route: 041
     Dates: end: 20170329
  12. CEREZYME [Suspect]
     Active Substance: IMIGLUCERASE
     Indication: Product used for unknown indication
     Dosage: 800 DF,QOW
     Route: 065
     Dates: end: 20210315
  13. SENNA [Suspect]
     Active Substance: SENNA LEAF\SENNOSIDES\SENNOSIDES A AND B
     Indication: Product used for unknown indication
     Dosage: UNK
     Route: 065
  14. SENNA [Suspect]
     Active Substance: SENNA LEAF\SENNOSIDES\SENNOSIDES A AND B
     Indication: Product used for unknown indication
     Route: 065
  15. BENSERAZIDE HYDROCHLORIDE\LEVODOPA [Suspect]
     Active Substance: BENSERAZIDE HYDROCHLORIDE\LEVODOPA
     Indication: Product used for unknown indication
     Dosage: UNK UNK,UNK
     Route: 065
  16. BENSERAZIDE HYDROCHLORIDE\LEVODOPA [Suspect]
     Active Substance: BENSERAZIDE HYDROCHLORIDE\LEVODOPA
     Indication: Product used for unknown indication
     Dosage: DOSAGE TEXT: UNK
     Route: 065
  17. CYCLIZINE [Suspect]
     Active Substance: CYCLIZINE
     Indication: Product used for unknown indication
     Dosage: UNK UNK,UNK
     Route: 065
  18. CYCLIZINE [Suspect]
     Active Substance: CYCLIZINE
     Indication: Product used for unknown indication
     Dosage: DOSAGE TEXT: UNK
     Route: 065
     Dates: start: 20170315
  19. CYCLIZINE [Suspect]
     Active Substance: CYCLIZINE
     Indication: Product used for unknown indication
     Dosage: DOSAGE TEXT: UNK
     Route: 065
     Dates: start: 20170329
  20. DOMPERIDONE [Suspect]
     Active Substance: DOMPERIDONE
     Indication: Product used for unknown indication
     Dosage: UNK
     Route: 065
     Dates: end: 20210329
  21. DOMPERIDONE [Suspect]
     Active Substance: DOMPERIDONE
     Indication: Product used for unknown indication
     Dosage: DOSAGE TEXT: INJECTION/120
     Route: 065
     Dates: end: 20170329
  22. DOMPERIDONE [Suspect]
     Active Substance: DOMPERIDONE
     Indication: Product used for unknown indication
     Dosage: UNK UNK,UNK
     Route: 065
     Dates: end: 20170329
  23. LACTULOSE [Suspect]
     Active Substance: LACTULOSE
     Indication: Product used for unknown indication
     Dosage: UNK UNK,UNK
     Route: 065
  24. LACTULOSE [Suspect]
     Active Substance: LACTULOSE
     Indication: Product used for unknown indication
     Dosage: DOSAGE TEXT: UNK
     Route: 065
  25. QUETIAPINE [Suspect]
     Active Substance: QUETIAPINE
     Indication: Product used for unknown indication
     Dosage: UNK UNK,UNK
     Route: 065
  26. QUETIAPINE [Suspect]
     Active Substance: QUETIAPINE
     Indication: Product used for unknown indication
     Dosage: DOSAGE TEXT: UNK
     Route: 065

REACTIONS (2)
  - Parkinson^s disease [Unknown]
  - Dizziness [Unknown]
